FAERS Safety Report 4754319-5 (Version None)
Quarter: 2005Q3

REPORT INFORMATION
  Report Type: 
  Country: None (occurrence: None)
  Receive Date: 20050825
  Receipt Date: 20050817
  Transmission Date: 20060218
  Serious: Yes (Hospitalization)
  Sender: FDA-Public Use
  Company Number: 2005-07-2062

PATIENT
  Age: 51 Year
  Sex: Female
  Weight: 82.1011 kg

DRUGS (8)
  1. PEG-INTRON [Suspect]
     Indication: HEPATITIS C
     Dosage: SEE IMAGE
     Route: 058
     Dates: start: 20050201, end: 20050722
  2. PEG-INTRON [Suspect]
     Indication: HEPATITIS C
     Dosage: SEE IMAGE
     Route: 058
     Dates: start: 20050201
  3. PEG-INTRON [Suspect]
     Indication: HEPATITIS C
     Dosage: SEE IMAGE
     Route: 058
     Dates: start: 20050807
  4. MILK THISTLE FRUIT [Concomitant]
  5. VITAMIN B-12 [Concomitant]
  6. VITAMIN B12 INJ [Concomitant]
  7. MULTI-VITAMINS [Concomitant]
  8. IBUPROFEN [Concomitant]

REACTIONS (3)
  - HERPES SIMPLEX [None]
  - INFECTION [None]
  - ONYCHOMADESIS [None]
